FAERS Safety Report 9615309 (Version 1)
Quarter: 2013Q4

REPORT INFORMATION
  Report Type: Spontaneous
  Country: US (occurrence: US)
  Receive Date: 20131011
  Receipt Date: 20131011
  Transmission Date: 20140711
  Serious: Yes (Hospitalization)
  Sender: FDA-Public Use
  Company Number: US-JNJFOC-20131005214

PATIENT
  Age: 82 Year
  Sex: Female
  Weight: 49.9 kg

DRUGS (4)
  1. SANDOZ FENTANYL TRANSDERMAL SYSTEM [Suspect]
     Indication: PAIN
     Route: 062
     Dates: start: 201306
  2. SANDOZ FENTANYL TRANSDERMAL SYSTEM [Suspect]
     Indication: PAIN
     Route: 062
     Dates: start: 2013, end: 201306
  3. SANDOZ FENTANYL TRANSDERMAL SYSTEM [Suspect]
     Indication: PAIN
     Route: 062
     Dates: start: 2013, end: 2013
  4. GABAPENTIN [Concomitant]
     Indication: PAIN
     Dosage: 4 X 300MG CAPSULES
     Route: 048

REACTIONS (4)
  - Pain [Recovering/Resolving]
  - Gait disturbance [Recovering/Resolving]
  - Drug ineffective [Not Recovered/Not Resolved]
  - Product quality issue [Unknown]
